FAERS Safety Report 6287670-0 (Version None)
Quarter: 2009Q3

REPORT INFORMATION
  Report Type: 
  Country: None (occurrence: None)
  Receive Date: 20090727
  Receipt Date: 20090727
  Transmission Date: 20100115
  Serious: No
  Sender: FDA-Public Use
  Company Number: None

PATIENT
  Sex: Male
  Weight: 92.9874 kg

DRUGS (2)
  1. HYDROCODONE BITARTRATE AND ACETAMINOPHEN [Suspect]
     Indication: ARTHRITIS
     Dosage: 1, EVERY 4 HOURS, PO
     Route: 048
     Dates: start: 19980922, end: 20090723
  2. HYDROCODONE BITARTRATE AND ACETAMINOPHEN [Suspect]
     Indication: POSTOPERATIVE CARE
     Dosage: 1, EVERY 4 HOURS, PO
     Route: 048
     Dates: start: 19980922, end: 20090723

REACTIONS (5)
  - DRUG INEFFECTIVE [None]
  - HEADACHE [None]
  - PRODUCT COLOUR ISSUE [None]
  - PRODUCT SHAPE ISSUE [None]
  - PRODUCT SUBSTITUTION ISSUE [None]
